FAERS Safety Report 24868041 (Version 3)
Quarter: 2025Q2

REPORT INFORMATION
  Report Type: Spontaneous
  Country: GB (occurrence: GB)
  Receive Date: 20250121
  Receipt Date: 20250403
  Transmission Date: 20250717
  Serious: Yes (Other)
  Sender: SANDOZ
  Company Number: GB-LICONSA-2021-009482

PATIENT
  Sex: Male

DRUGS (27)
  1. AMLODIPINE [Suspect]
     Active Substance: AMLODIPINE BESYLATE
     Route: 065
  2. AMLODIPINE [Suspect]
     Active Substance: AMLODIPINE BESYLATE
     Indication: Product used for unknown indication
     Route: 065
  3. ATORVASTATIN [Suspect]
     Active Substance: ATORVASTATIN
     Route: 065
  4. ATORVASTATIN [Suspect]
     Active Substance: ATORVASTATIN
     Indication: Product used for unknown indication
     Route: 065
  5. ASPIRIN [Suspect]
     Active Substance: ASPIRIN
     Indication: Product used for unknown indication
     Route: 065
  6. CANDESARTAN [Suspect]
     Active Substance: CANDESARTAN
     Route: 065
  7. CANDESARTAN [Suspect]
     Active Substance: CANDESARTAN
     Indication: Product used for unknown indication
     Route: 065
  8. COD LIVER OIL [Suspect]
     Active Substance: COD LIVER OIL
     Route: 065
  9. COD LIVER OIL [Suspect]
     Active Substance: COD LIVER OIL
     Indication: Product used for unknown indication
     Route: 065
  10. COD LIVER OIL [Suspect]
     Active Substance: COD LIVER OIL
     Route: 065
  11. COSENTYX [Suspect]
     Active Substance: SECUKINUMAB
     Indication: Psoriasis
     Dosage: 300 MILLIGRAM (MONTHLY)
     Route: 059
     Dates: start: 2019
  12. GABAPENTIN [Suspect]
     Active Substance: GABAPENTIN
     Route: 065
  13. GABAPENTIN [Suspect]
     Active Substance: GABAPENTIN
     Indication: Nerve injury
     Route: 065
  14. GLUCOSAMINE\GLUCOSAMINE SULFATE [Suspect]
     Active Substance: GLUCOSAMINE\GLUCOSAMINE SULFATE
     Indication: Product used for unknown indication
     Route: 065
  15. INDAPAMIDE HEMIHYDRATE [Suspect]
     Active Substance: INDAPAMIDE HEMIHYDRATE
     Indication: Product used for unknown indication
     Dosage: 2.5 MG, QD
     Route: 065
  16. INDAPAMIDE HEMIHYDRATE [Suspect]
     Active Substance: INDAPAMIDE HEMIHYDRATE
     Indication: Product used for unknown indication
     Dosage: 2.5 MILLIGRAM, ONCE A DAY
     Route: 065
  17. LANSOPRAZOLE [Suspect]
     Active Substance: LANSOPRAZOLE
     Route: 065
  18. LANSOPRAZOLE [Suspect]
     Active Substance: LANSOPRAZOLE
     Route: 065
  19. LANSOPRAZOLE [Suspect]
     Active Substance: LANSOPRAZOLE
     Indication: Product used for unknown indication
     Route: 065
  20. LANSOPRAZOLE [Suspect]
     Active Substance: LANSOPRAZOLE
     Indication: Gastrooesophageal reflux disease
     Route: 065
  21. METFORMIN [Suspect]
     Active Substance: METFORMIN HYDROCHLORIDE
     Indication: Product used for unknown indication
     Dosage: 500 MG, QD
     Route: 065
  22. VITAMINS [Suspect]
     Active Substance: VITAMINS
     Indication: Product used for unknown indication
     Route: 065
  23. NAPROXEN [Suspect]
     Active Substance: NAPROXEN
     Indication: Product used for unknown indication
     Dosage: 100 MG, QD
     Route: 065
  24. NAPROXEN [Suspect]
     Active Substance: NAPROXEN
     Dosage: NAPROXEN 100MG A DAY
     Route: 065
  25. VITAMIN D3 [Suspect]
     Active Substance: CHOLECALCIFEROL
     Indication: Product used for unknown indication
     Route: 065
  26. VITAMIN D3 [Suspect]
     Active Substance: CHOLECALCIFEROL
     Route: 065
  27. MINERAL OIL\PETROLATUM\WAX, EMULSIFYING [Concomitant]
     Active Substance: MINERAL OIL\PETROLATUM\WAX, EMULSIFYING
     Indication: Product used for unknown indication
     Route: 065

REACTIONS (4)
  - Psoriasis [Unknown]
  - Off label use [Unknown]
  - Wrong dose [Unknown]
  - Intentional product misuse [Unknown]
